FAERS Safety Report 20081609 (Version 2)
Quarter: 2021Q4

REPORT INFORMATION
  Report Type: Spontaneous
  Country: BE (occurrence: BE)
  Receive Date: 20211117
  Receipt Date: 20211217
  Transmission Date: 20220303
  Serious: Yes (Death, Other)
  Sender: FDA-Public Use
  Company Number: BE-BoehringerIngelheim-2021-BI-138835

PATIENT
  Sex: Male

DRUGS (1)
  1. UNSPECIFIED INGREDIENT [Suspect]
     Active Substance: UNSPECIFIED INGREDIENT
     Indication: Product used for unknown indication
     Dosage: 60

REACTIONS (1)
  - Haemorrhage intracranial [Fatal]
